FAERS Safety Report 9417873 (Version 1)
Quarter: 2013Q3

REPORT INFORMATION
  Report Type: Report from Study
  Country: US (occurrence: US)
  Receive Date: 20130724
  Receipt Date: 20130724
  Transmission Date: 20140515
  Serious: Yes (Other)
  Sender: FDA-Public Use
  Company Number: US-ABBOTT-13P-163-1120071-00

PATIENT
  Sex: Female

DRUGS (3)
  1. HUMIRA [Suspect]
     Indication: RHEUMATOID ARTHRITIS
     Route: 058
     Dates: start: 201302, end: 201305
  2. PREDNISONE [Concomitant]
     Indication: RHEUMATOID ARTHRITIS
  3. RIFAMPIN [Concomitant]
     Indication: TUBERCULOSIS

REACTIONS (4)
  - Rotator cuff syndrome [Recovering/Resolving]
  - Tendon rupture [Recovering/Resolving]
  - Joint range of motion decreased [Not Recovered/Not Resolved]
  - Musculoskeletal pain [Recovering/Resolving]
